FAERS Safety Report 9163098 (Version 1)
Quarter: 2013Q1

REPORT INFORMATION
  Report Type: Spontaneous
  Country: DK (occurrence: None)
  Receive Date: 20130227
  Receipt Date: 20130227
  Transmission Date: 20140127
  Serious: Yes (Other)
  Sender: FDA-Public Use
  Company Number: 2013MA001297

PATIENT
  Age: 75 Year
  Sex: Female

DRUGS (1)
  1. BUTALBITAL, ASPIRIN, AND CAFFEINE [Suspect]
     Indication: ANTICOAGULANT THERAPY

REACTIONS (1)
  - Cerebrovascular accident [None]
